FAERS Safety Report 22833661 (Version 4)
Quarter: 2023Q4

REPORT INFORMATION
  Report Type: Spontaneous
  Country: US (occurrence: None)
  Receive Date: 20230817
  Receipt Date: 20231027
  Transmission Date: 20240110
  Serious: Yes (Other)
  Sender: FDA-Public Use
  Company Number: 2023A183134

PATIENT
  Age: 81 Year
  Sex: Female

DRUGS (1)
  1. FASENRA [Suspect]
     Active Substance: BENRALIZUMAB
     Indication: Asthma
     Dosage: 30MG/ML
     Route: 058
     Dates: start: 202304

REACTIONS (8)
  - Bladder disorder [Unknown]
  - Asthma [Unknown]
  - Pain [Unknown]
  - Hypersensitivity [Unknown]
  - Headache [Unknown]
  - Drug ineffective [Unknown]
  - Inability to afford medication [Unknown]
  - Product use issue [Unknown]
